FAERS Safety Report 18883166 (Version 9)
Quarter: 2021Q3

REPORT INFORMATION
  Report Type: Report from Study
  Country: US (occurrence: US)
  Receive Date: 20210211
  Receipt Date: 20210816
  Transmission Date: 20211014
  Serious: Yes (Hospitalization)
  Sender: FDA-Public Use
  Company Number: US-SEATTLE GENETICS-2021SGN00050

PATIENT
  Sex: Female

DRUGS (8)
  1. XELODA [Suspect]
     Active Substance: CAPECITABINE
     Indication: BREAST CANCER FEMALE
     Dosage: UNK
     Route: 065
  2. KEPPRA [Concomitant]
     Active Substance: LEVETIRACETAM
  3. LOVENOX [Concomitant]
     Active Substance: ENOXAPARIN SODIUM
  4. TUCATINIB [Suspect]
     Active Substance: TUCATINIB
     Dosage: UNK
  5. TUCATINIB [Suspect]
     Active Substance: TUCATINIB
     Dosage: UNK
  6. TUCATINIB [Suspect]
     Active Substance: TUCATINIB
     Indication: BREAST CANCER FEMALE
     Dosage: UNK
  7. HERCEPTIN [Concomitant]
     Active Substance: TRASTUZUMAB
  8. TUCATINIB [Suspect]
     Active Substance: TUCATINIB
     Dosage: UNK

REACTIONS (16)
  - Asthenia [Unknown]
  - Coagulopathy [Unknown]
  - Platelet count decreased [Unknown]
  - Thrombosis [Unknown]
  - Dehydration [Unknown]
  - Product dose omission issue [Unknown]
  - Hypotension [Unknown]
  - SARS-CoV-2 test positive [Unknown]
  - Bedridden [Unknown]
  - Wheezing [Unknown]
  - COVID-19 [Unknown]
  - Neuralgia [Unknown]
  - Mobility decreased [Unknown]
  - Fatigue [Unknown]
  - Infection [Unknown]
  - Cough [Unknown]
